FAERS Safety Report 7909689-3 (Version None)
Quarter: 2011Q4

REPORT INFORMATION
  Report Type: 
  Country: None (occurrence: None)
  Receive Date: 20111111
  Receipt Date: 20111104
  Transmission Date: 20120403
  Serious: Yes (Hospitalization)
  Sender: FDA-Public Use
  Company Number: ME-GLAXOSMITHKLINE-B0760238A

PATIENT
  Sex: Female
  Weight: 65 kg

DRUGS (5)
  1. SULPIRID [Concomitant]
     Dosage: 200MG PER DAY
     Route: 048
     Dates: start: 20110929, end: 20111011
  2. TRAZODONE HCL [Concomitant]
     Dosage: 100MG PER DAY
     Route: 048
     Dates: start: 20110929, end: 20111015
  3. PAROXETINE HCL [Suspect]
     Indication: DEPRESSION
     Dosage: 20MG PER DAY
     Route: 048
     Dates: start: 20110930, end: 20111006
  4. ZOLOFT [Suspect]
     Indication: DEPRESSION
     Dosage: 100MG PER DAY
     Route: 048
     Dates: start: 20110922, end: 20110929
  5. BROMAZEPAM [Concomitant]
     Dosage: 9MG PER DAY
     Route: 048
     Dates: start: 20110928, end: 20111007

REACTIONS (4)
  - ACTIVATION SYNDROME [None]
  - INSOMNIA [None]
  - ANXIETY [None]
  - SUICIDAL IDEATION [None]
